FAERS Safety Report 4357320-9 (Version None)
Quarter: 2004Q2

REPORT INFORMATION
  Report Type: 
  Country: None (occurrence: None)
  Receive Date: 20040507
  Receipt Date: 20040415
  Transmission Date: 20050107
  Serious: Yes (Disabling, Other)
  Sender: FDA-Public Use
  Company Number: USA040465146

PATIENT
  Sex: Male

DRUGS (1)
  1. HUMULIN N [Suspect]

REACTIONS (1)
  - BLINDNESS [None]
